FAERS Safety Report 19046901 (Version 7)
Quarter: 2021Q3

REPORT INFORMATION
  Report Type: Report from Study
  Country: US (occurrence: US)
  Receive Date: 20210323
  Receipt Date: 20210831
  Transmission Date: 20211014
  Serious: Yes (Hospitalization)
  Sender: FDA-Public Use
  Company Number: NVSC2021US063928

PATIENT
  Sex: Male

DRUGS (3)
  1. PROMACTA [Suspect]
     Active Substance: ELTROMBOPAG OLAMINE
     Dosage: UNK
     Route: 048
  2. PROMACTA [Suspect]
     Active Substance: ELTROMBOPAG OLAMINE
     Indication: PRODUCT USED FOR UNKNOWN INDICATION
     Dosage: UNK
     Route: 048
  3. PROMACTA [Suspect]
     Active Substance: ELTROMBOPAG OLAMINE
     Dosage: 50 MG, QD
     Route: 048

REACTIONS (11)
  - Coordination abnormal [Unknown]
  - Limb injury [Unknown]
  - Product supply issue [Unknown]
  - Platelet count increased [Unknown]
  - Hypercoagulation [Unknown]
  - Pruritus [Unknown]
  - Headache [Unknown]
  - Platelet count decreased [Unknown]
  - Feeling abnormal [Unknown]
  - Paraesthesia [Unknown]
  - Eye colour change [Unknown]
